FAERS Safety Report 5245967-7 (Version None)
Quarter: 2007Q1

REPORT INFORMATION
  Report Type: 
  Country: None (occurrence: None)
  Receive Date: 20070221
  Receipt Date: 20070212
  Transmission Date: 20070707
  Serious: Yes (Other)
  Sender: FDA-Public Use
  Company Number: CHNY2007DE00870

PATIENT
  Age: 55 Year
  Sex: Female

DRUGS (2)
  1. NICOTINE [Suspect]
     Dosage: 21 MG, QD, TRANSDERMAL; 14 MG, QD, TRANSDERMAL
     Route: 062
     Dates: end: 20070101
  2. NICOTINE [Suspect]
     Dosage: 21 MG, QD, TRANSDERMAL; 14 MG, QD, TRANSDERMAL
     Route: 062
     Dates: start: 20070101

REACTIONS (3)
  - GENERALISED OEDEMA [None]
  - HYPERSENSITIVITY [None]
  - URTICARIA GENERALISED [None]
